FAERS Safety Report 9013770 (Version 1)
Quarter: 2012Q4

REPORT INFORMATION
  Report Type: Spontaneous
  Country: CA (occurrence: None)
  Receive Date: 20121231
  Receipt Date: 20121231
  Transmission Date: 20130627
  Serious: Yes (Life-Threatening, Hospitalization)
  Sender: FDA-Public Use
  Company Number: 2012306567

PATIENT
  Age: 78 Year
  Sex: Male
  Weight: 81.6 kg

DRUGS (7)
  1. FRAGMIN (DALTEPARIN SODIUM) SOLUTION FOR INJECTION [Suspect]
     Indication: COAGULOPATHY
     Dosage: 37500 IU, previous night and in am (every 12 hours), Subcutaneous
  2. FUROSEMIDE (FUROSEMIDE) [Concomitant]
  3. COVERSYL (PERINDOPRIL) [Concomitant]
  4. WARFARIN (WARFARIN) [Concomitant]
  5. SLOW-K (POTASSIUM CHLORIDE) [Concomitant]
  6. SIMVASTATIN (SIMVASTATIN) [Concomitant]
  7. CARVEDILOL (CARVEDILOL) [Concomitant]

REACTIONS (3)
  - Hypotension [None]
  - Malaise [None]
  - Pallor [None]
